FAERS Safety Report 21082010 (Version 2)
Quarter: 2022Q3

REPORT INFORMATION
  Report Type: Spontaneous
  Country: JP (occurrence: JP)
  Receive Date: 20220714
  Receipt Date: 20220926
  Transmission Date: 20221027
  Serious: Yes (Death, Other)
  Sender: FDA-Public Use
  Company Number: JP-CHEMOCENTRYX, INC.-2022JPCCXI0215

PATIENT

DRUGS (5)
  1. TAVNEOS [Suspect]
     Active Substance: AVACOPAN
     Indication: Microscopic polyangiitis
     Dosage: 60 MG, QD (1 IN 1 D)
     Route: 048
     Dates: start: 20220607, end: 2022
  2. TAVNEOS [Suspect]
     Active Substance: AVACOPAN
     Dosage: UNK
     Route: 065
     Dates: start: 2022, end: 202209
  3. ADRENAL [Concomitant]
     Active Substance: EPINEPHRINE
     Indication: Microscopic polyangiitis
     Dosage: 20 MG (20 MG, 1 IN 1 D)
     Route: 065
  4. RITUXIMAB [Concomitant]
     Active Substance: RITUXIMAB
     Indication: Microscopic polyangiitis
     Dosage: UNK
     Route: 065
     Dates: start: 201904
  5. PREDNISOLONE [Concomitant]
     Active Substance: PREDNISOLONE
     Indication: Microscopic polyangiitis
     Dosage: UNK
     Route: 065
     Dates: start: 201902

REACTIONS (3)
  - Sepsis [Fatal]
  - Rectal haemorrhage [Recovered/Resolved]
  - Device related infection [Unknown]

NARRATIVE: CASE EVENT DATE: 20220101
